FAERS Safety Report 4351116-X (Version None)
Quarter: 2004Q2

REPORT INFORMATION
  Report Type: 
  Country: None (occurrence: None)
  Receive Date: 20040430
  Receipt Date: 20040422
  Transmission Date: 20050107
  Serious: Yes (Hospitalization)
  Sender: FDA-Public Use
  Company Number: FR-MERCK-0404FRA00082

PATIENT
  Age: 45 Year
  Sex: Female

DRUGS (3)
  1. DIDANOSINE [Suspect]
     Indication: HIV INFECTION
     Route: 048
     Dates: start: 19981224
  2. HYDROXYUREA [Suspect]
     Indication: HIV INFECTION
     Route: 065
     Dates: start: 19981224
  3. CRIXIVAN [Suspect]
     Indication: HIV INFECTION
     Route: 048
     Dates: start: 19981224

REACTIONS (8)
  - ASPIRATION BONE MARROW ABNORMAL [None]
  - HAEMOGLOBIN DECREASED [None]
  - HEPATOSPLENOMEGALY [None]
  - IMMUNE RECONSTITUTION SYNDROME [None]
  - PLATELET COUNT DECREASED [None]
  - PYREXIA [None]
  - VISCERAL LEISHMANIASIS [None]
  - WHITE BLOOD CELL COUNT DECREASED [None]
